FAERS Safety Report 16138356 (Version 1)
Quarter: 2019Q2

REPORT INFORMATION
  Report Type: Spontaneous
  Country: US (occurrence: US)
  Receive Date: 20190401
  Receipt Date: 20190401
  Transmission Date: 20190711
  Serious: No
  Sender: FDA-Public Use
  Company Number: US-AUROBINDO-AUR-APL-2019-008661

PATIENT

DRUGS (3)
  1. SILDENAFIL 100MG TABLETS USP [Suspect]
     Active Substance: SILDENAFIL
     Dosage: UNK
     Route: 065
     Dates: start: 20190121
  2. SILDENAFIL 100MG TABLETS USP [Suspect]
     Active Substance: SILDENAFIL
     Dosage: UNK
     Route: 065
     Dates: start: 20190107
  3. SILDENAFIL 100MG TABLETS USP [Suspect]
     Active Substance: SILDENAFIL
     Indication: ERECTILE DYSFUNCTION
     Dosage: UNK
     Route: 065
     Dates: start: 20190209

REACTIONS (2)
  - Drug ineffective [Unknown]
  - Product substitution issue [Unknown]

NARRATIVE: CASE EVENT DATE: 20190209
